FAERS Safety Report 17940453 (Version 1)
Quarter: 2020Q2

REPORT INFORMATION
  Report Type: Spontaneous
  Country: US (occurrence: US)
  Receive Date: 20200624
  Receipt Date: 20200624
  Transmission Date: 20200714
  Serious: No
  Sender: FDA-Public Use
  Company Number: None

PATIENT
  Age: 58 Year
  Sex: Female

DRUGS (2)
  1. ENTYVIO [Suspect]
     Active Substance: VEDOLIZUMAB
     Indication: SHORT-BOWEL SYNDROME
     Dosage: ?          OTHER STRENGTH:300MG/VL;OTHER FREQUENCY:EVERY 8 WEEKS;?
     Route: 042
     Dates: start: 20200609, end: 20200611
  2. SOD CHLOR (250MG/VL BAG) [Suspect]
     Active Substance: SODIUM CHLORIDE
     Indication: SHORT-BOWEL SYNDROME
     Dosage: ?          OTHER STRENGTH:300MG/VL;OTHER FREQUENCY:EVERY 8 WEEKS;?
     Route: 042

REACTIONS (1)
  - Product container issue [None]

NARRATIVE: CASE EVENT DATE: 20200611
